FAERS Safety Report 4888884-4 (Version None)
Quarter: 2006Q1

REPORT INFORMATION
  Report Type: 
  Country: None (occurrence: None)
  Receive Date: 20060123
  Receipt Date: 20051005
  Transmission Date: 20060701
  Serious: Yes (Other)
  Sender: FDA-Public Use
  Company Number: US-MERCK-0510USA04455

PATIENT
  Age: 65 Year
  Sex: Female
  Weight: 64 kg

DRUGS (5)
  1. VIOXX [Suspect]
     Indication: BACK PAIN
     Route: 048
     Dates: start: 20000101, end: 20010201
  2. PREMARIN [Concomitant]
     Route: 065
  3. PROTONIX [Concomitant]
     Route: 065
  4. TRAZODONE HYDROCHLORIDE [Concomitant]
     Route: 065
  5. LANOXIN [Concomitant]
     Route: 065

REACTIONS (3)
  - ANGINA PECTORIS [None]
  - BACK INJURY [None]
  - MYOCARDIAL INFARCTION [None]
